FAERS Safety Report 7798432-7 (Version None)
Quarter: 2011Q4

REPORT INFORMATION
  Report Type: 
  Country: None (occurrence: None)
  Receive Date: 20111005
  Receipt Date: 20110921
  Transmission Date: 20120403
  Serious: Yes (Other)
  Sender: FDA-Public Use
  Company Number: US-WATSON-2011-15198

PATIENT
  Age: 7 Year
  Sex: Female

DRUGS (1)
  1. GELNIQUE [Suspect]
     Indication: HYPERTONIC BLADDER
     Dosage: 1 APPLICATION DAILY
     Route: 061
     Dates: start: 20110110, end: 20110210

REACTIONS (1)
  - HALLUCINATION [None]
